FAERS Safety Report 8161383-2 (Version None)
Quarter: 2012Q1

REPORT INFORMATION
  Report Type: 
  Country: None (occurrence: None)
  Receive Date: 20120222
  Receipt Date: 20120222
  Transmission Date: 20120608
  Serious: Yes (Hospitalization)
  Sender: FDA-Public Use
  Company Number: None

PATIENT
  Age: 73 Year
  Sex: Male
  Weight: 85.1 kg

DRUGS (1)
  1. IMIPENEM AND CILASTATIN SODIUM [Suspect]
     Indication: URINARY TRACT INFECTION
     Dosage: 250 MG BID IV
     Route: 042
     Dates: start: 20120209, end: 20120213

REACTIONS (1)
  - CONVULSION [None]
